FAERS Safety Report 7621535-4 (Version None)
Quarter: 2011Q3

REPORT INFORMATION
  Report Type: 
  Country: None (occurrence: None)
  Receive Date: 20110719
  Receipt Date: 20110712
  Transmission Date: 20111222
  Serious: Yes (Other)
  Sender: FDA-Public Use
  Company Number: BR-ABBOTT-11P-020-0838391-00

PATIENT
  Sex: Female
  Weight: 77 kg

DRUGS (11)
  1. LOSARTAN [Concomitant]
     Indication: HYPERTENSION
     Route: 048
  2. RANITIDINE [Concomitant]
     Indication: PROPHYLAXIS
     Route: 048
  3. HUMIRA [Suspect]
     Indication: RHEUMATOID ARTHRITIS
     Route: 058
  4. PRESSAT [Concomitant]
     Indication: HYPERTENSION
     Route: 048
  5. ATENOLOL [Concomitant]
     Indication: HYPERTENSION
     Route: 048
  6. METHOTREXATE [Concomitant]
     Indication: RHEUMATOID ARTHRITIS
     Route: 048
  7. FUROSEMIDE [Concomitant]
     Indication: HYPERTENSION
     Route: 048
  8. RANITIDINE [Concomitant]
     Indication: GASTRIC DISORDER
  9. PREDNISONE [Concomitant]
     Indication: RHEUMATOID ARTHRITIS
     Route: 048
  10. INSULIN [Concomitant]
     Indication: DIABETES MELLITUS
     Dosage: 50ML AND 20ML
     Route: 058
  11. TYLENOL-500 [Concomitant]
     Indication: PAIN
     Route: 048

REACTIONS (12)
  - ROAD TRAFFIC ACCIDENT [None]
  - NODULE [None]
  - CARDIOMEGALY [None]
  - INJECTION SITE PAIN [None]
  - BLOOD CHOLESTEROL INCREASED [None]
  - DRY EYE [None]
  - UPPER LIMB FRACTURE [None]
  - PERIPHERAL VASCULAR DISORDER [None]
  - ARTHRALGIA [None]
  - BLOOD PRESSURE INCREASED [None]
  - VISION BLURRED [None]
  - BLOOD GLUCOSE INCREASED [None]
